FAERS Safety Report 5113877-1 (Version None)
Quarter: 2006Q3

REPORT INFORMATION
  Report Type: 
  Country: None (occurrence: None)
  Receive Date: 20060925
  Receipt Date: 20060914
  Transmission Date: 20061208
  Serious: Yes (Hospitalization)
  Sender: FDA-Public Use
  Company Number: FR-ROCHE-463516

PATIENT
  Age: 65 Year
  Sex: Male

DRUGS (3)
  1. ROCEPHIN [Suspect]
     Indication: OSTEITIS
     Route: 065
     Dates: start: 20060110, end: 20060210
  2. CIFLOX [Concomitant]
     Dates: start: 20060110, end: 20060210
  3. RIFADIN [Concomitant]
     Dates: start: 20060110, end: 20060210

REACTIONS (5)
  - GENERAL PHYSICAL HEALTH DETERIORATION [None]
  - HEPATOMEGALY [None]
  - PYREXIA [None]
  - RASH PUSTULAR [None]
  - RENAL FAILURE [None]
